FAERS Safety Report 22025633 (Version 1)
Quarter: 2023Q1

REPORT INFORMATION
  Report Type: Spontaneous
  Country: US (occurrence: None)
  Receive Date: 20230223
  Receipt Date: 20230223
  Transmission Date: 20230418
  Serious: No
  Sender: FDA-Public Use
  Company Number: US-ROCHE-3150699

PATIENT
  Sex: Female

DRUGS (1)
  1. XOLAIR [Suspect]
     Active Substance: OMALIZUMAB
     Indication: Urticaria
     Route: 058
     Dates: start: 20220114

REACTIONS (5)
  - Hepatic enzyme increased [Unknown]
  - Asthenia [Unknown]
  - Feeling abnormal [Unknown]
  - Dizziness [Unknown]
  - Off label use [Unknown]
